FAERS Safety Report 10080911 (Version 1)
Quarter: 2014Q2

REPORT INFORMATION
  Report Type: Report from Study
  Country: TW (occurrence: TW)
  Receive Date: 20140416
  Receipt Date: 20140416
  Transmission Date: 20141212
  Serious: No
  Sender: FDA-Public Use
  Company Number: PHHY2014TW044220

PATIENT
  Age: 83 Year
  Sex: Male

DRUGS (97)
  1. BROMHEXINE [Concomitant]
     Indication: COUGH
     Dosage: UNK
     Dates: start: 20120712, end: 20120809
  2. BROMHEXINE [Concomitant]
     Dosage: UNK
     Dates: start: 20130419, end: 20130502
  3. C.T.M. [Concomitant]
     Indication: URTICARIA
     Dosage: UNK
     Dates: start: 20120111, end: 20120126
  4. C.T.M. [Concomitant]
     Indication: RANULA
     Dosage: UNK
     Dates: start: 20120615, end: 20120629
  5. C.T.M. [Concomitant]
     Dosage: UNK
     Dates: end: 20120706
  6. C.T.M. [Concomitant]
     Dosage: UNK
     Dates: start: 20121127, end: 20121225
  7. C.T.M. [Concomitant]
     Dosage: UNK
     Dates: start: 20130718, end: 20130721
  8. POTASSIUM CHLORIDE [Concomitant]
     Indication: HYPOKALAEMIA
     Dosage: UNK
     Dates: start: 20111230, end: 20111230
  9. ACETYLSALICYLIC ACID [Concomitant]
     Indication: THROMBOSIS
     Dosage: UNK
     Dates: start: 20111226, end: 20111226
  10. ACETYLSALICYLIC ACID [Concomitant]
     Dosage: UNK
     Dates: start: 20120419
  11. LORAZEPAM [Concomitant]
     Indication: INSOMNIA
     Dosage: UNK
     Dates: start: 20120104, end: 20120105
  12. LORAZEPAM [Concomitant]
     Dosage: UNK
     Dates: start: 20120111, end: 20120117
  13. SENOKOT                                 /UNK/ [Concomitant]
     Indication: CONSTIPATION
     Dosage: UNK
     Dates: start: 20120906, end: 20121004
  14. SENOKOT                                 /UNK/ [Concomitant]
     Dosage: UNK
     Dates: start: 20111223, end: 20111230
  15. SENOKOT                                 /UNK/ [Concomitant]
     Dosage: UNK
     Dates: start: 20111229, end: 20111231
  16. SENOKOT                                 /UNK/ [Concomitant]
     Dosage: UNK
     Dates: start: 20120111, end: 20120128
  17. SENOKOT                                 /UNK/ [Concomitant]
     Dosage: UNK
     Dates: start: 20121214, end: 20130208
  18. CHLORPHENIRAMIN [Concomitant]
     Indication: TRANSFUSION
     Dosage: UNK
     Dates: start: 20111226, end: 20111226
  19. CHLORPHENIRAMIN [Concomitant]
     Indication: CATHETERISATION CARDIAC
     Dosage: UNK
     Dates: start: 20111227, end: 20111227
  20. CHLORPHENIRAMIN [Concomitant]
     Indication: RANULA
     Dosage: UNK
     Dates: start: 20111228, end: 20111228
  21. CHLORPHENIRAMIN [Concomitant]
     Dosage: UNK
     Dates: start: 20120110, end: 20120110
  22. CHLORPHENIRAMIN [Concomitant]
     Dosage: UNK
     Dates: start: 20120203, end: 20120203
  23. CHLORPHENIRAMIN [Concomitant]
     Dosage: UNK
     Dates: start: 20120330, end: 20120330
  24. CHLORPHENIRAMIN [Concomitant]
     Dosage: UNK
     Dates: start: 20120518, end: 20120518
  25. CHLORPHENIRAMIN [Concomitant]
     Dosage: UNK
     Dates: start: 20130716, end: 20130716
  26. CHLORPHENIRAMIN [Concomitant]
     Dosage: UNK
     Dates: start: 20130718, end: 20130718
  27. CHLORPHENIRAMIN [Concomitant]
     Dosage: UNK
     Dates: start: 20131016, end: 20131016
  28. AMLODIPINE [Concomitant]
     Indication: HYPERTENSION
     Dosage: UNK
     Dates: start: 20111228, end: 20111228
  29. HYDROCORTISONE [Concomitant]
     Indication: TRANSFUSION
     Dosage: UNK
     Dates: start: 20111227, end: 20111227
  30. HYDROCORTISONE [Concomitant]
     Indication: WHEEZING
     Dosage: UNK
     Dates: start: 20111230, end: 20111230
  31. HYDROCORTISONE [Concomitant]
     Indication: RANULA
     Dosage: UNK
     Dates: start: 20120203, end: 20120203
  32. HYDROCORTISONE [Concomitant]
     Dosage: UNK
     Dates: start: 20120330, end: 20120330
  33. HYDROCORTISONE [Concomitant]
     Dosage: UNK
     Dates: start: 20120518, end: 20120518
  34. HYDROCORTISONE [Concomitant]
     Dosage: UNK
     Dates: start: 20121016, end: 20121016
  35. HYDROCORTISONE [Concomitant]
     Dosage: UNK
     Dates: start: 20130718, end: 20130718
  36. BROWN MIXTURE                      /01682301/ [Concomitant]
     Indication: COUGH
     Dosage: UNK
     Dates: start: 20120108, end: 20120117
  37. BROWN MIXTURE                      /01682301/ [Concomitant]
     Indication: PHARYNGITIS
     Dosage: UNK
     Dates: start: 20120622, end: 20120625
  38. BROWN MIXTURE                      /01682301/ [Concomitant]
     Indication: INFLUENZA
     Dosage: UNK
     Dates: start: 20130404, end: 20130415
  39. MAG OXIDE [Concomitant]
     Indication: CONSTIPATION
     Dosage: UNK
     Dates: start: 20111229, end: 20111231
  40. MAG OXIDE [Concomitant]
     Dosage: UNK
     Dates: start: 20130121, end: 20130218
  41. CLOTRIMAZOLE [Concomitant]
     Indication: URTICARIA
     Dosage: UNK
     Dates: start: 20120111, end: 20120117
  42. TAMSULOSIN HYDROCHLORIDE [Concomitant]
     Indication: BENIGN PROSTATIC HYPERPLASIA
     Dosage: UNK
     Dates: start: 20120118, end: 20120419
  43. POTASSIUM CITRATE [Concomitant]
     Indication: METABOLIC ACIDOSIS
     Dosage: UNK
     Dates: start: 20111230, end: 20111230
  44. DOXAZOSIN [Concomitant]
     Indication: HYPERTENSION
     Dosage: UNK
     Dates: start: 20120419
  45. METOCLOPRAMIDE [Concomitant]
     Indication: CONSTIPATION
     Dosage: UNK
     Dates: start: 20120108, end: 20120128
  46. FEXOFENADINE [Concomitant]
     Indication: URTICARIA
     Dosage: UNK
     Dates: start: 20120420, end: 20120713
  47. FEXOFENADINE [Concomitant]
     Dosage: UNK
     Dates: start: 20130820, end: 20130917
  48. CHLORHEXIDINE [Concomitant]
     Dosage: UNK
     Dates: start: 20120111, end: 20120117
  49. KCL [Concomitant]
     Indication: METABOLIC ALKALOSIS
     Dosage: UNK
     Dates: start: 20111230, end: 20120103
  50. SODIUM PHOSPHATE MONOBASIC [Concomitant]
     Indication: CONSTIPATION
     Dosage: UNK
     Dates: start: 20120109, end: 20120109
  51. CEFTRIAXONE [Concomitant]
     Indication: PNEUMONIA
     Dosage: UNK
     Dates: start: 20111225, end: 20111226
  52. ISOSORBIDE DINITRATE [Concomitant]
     Indication: MYOCARDIAL INFARCTION
     Dosage: UNK
     Dates: start: 20111225, end: 20120419
  53. SPIRONOLACTONE [Concomitant]
     Indication: PLEURAL EFFUSION
     Dosage: UNK
     Dates: start: 20111231, end: 20120101
  54. METOLAZONE [Concomitant]
     Indication: PLEURAL EFFUSION
     Dosage: UNK
     Dates: start: 20111226, end: 20111226
  55. MIDAZOLAM [Concomitant]
     Indication: SEDATIVE THERAPY
     Dosage: UNK
     Dates: start: 20111226, end: 20111226
  56. MIDAZOLAM [Concomitant]
     Indication: SEDATION
     Dosage: UNK
     Dates: start: 20111227, end: 20111228
  57. AMOXICILLIN [Concomitant]
     Indication: PNEUMONIA
     Dosage: UNK
     Dates: start: 20111226, end: 20120102
  58. ACETAMINOPHEN [Concomitant]
     Indication: PYREXIA
     Dosage: UNK
     Dates: start: 20111226, end: 20111226
  59. CLOPIDOGREL [Concomitant]
     Indication: MYOCARDIAL INFARCTION
     Dosage: UNK
     Dates: start: 20111226, end: 20111228
  60. MORPHINE [Concomitant]
     Indication: PLEURAL EFFUSION
     Dosage: UNK
     Dates: start: 20111226, end: 20111226
  61. FUROSEMIDE [Concomitant]
     Indication: PLEURAL EFFUSION
     Dosage: UNK
     Dates: start: 20111225
  62. ASPIRIN [Concomitant]
     Indication: THROMBOSIS
     Dosage: UNK
     Dates: start: 20120108, end: 20120419
  63. COMBIVENT UDV [Concomitant]
     Indication: WHEEZING
     Dosage: UNK
     Dates: start: 20111226, end: 20111226
  64. BENZBROMARONE [Concomitant]
     Indication: HYPERURICAEMIA
     Dosage: UNK
     Dates: start: 20111226, end: 20111226
  65. RENITEC                                 /NET/ [Concomitant]
     Indication: HYPERTENSION
     Dosage: UNK
     Dates: start: 20111226
  66. ATORVASTATIN [Concomitant]
     Indication: HYPERCHOLESTEROLAEMIA
     Dosage: UNK
     Dates: start: 20121129
  67. CLOBETASOL [Concomitant]
     Indication: ECZEMA
     Dosage: UNK
     Dates: start: 20120615, end: 20120706
  68. CLOBETASOL [Concomitant]
     Dosage: UNK
     Dates: start: 20121127, end: 20121225
  69. DICLOFENAC POTASSIUM [Concomitant]
     Indication: PHARYNGITIS
     Dosage: UNK
     Dates: start: 20120722, end: 20120725
  70. UREA [Concomitant]
     Indication: ECZEMA
     Dosage: UNK
     Dates: start: 20120615, end: 20120629
  71. UREA [Concomitant]
     Dosage: UNK
     Dates: start: 20120615, end: 20120706
  72. CETIRIZINE [Concomitant]
     Indication: URTICARIA
     Dosage: UNK
     Dates: start: 20120711, end: 20121101
  73. CETIRIZINE [Concomitant]
     Dosage: UNK
     Dates: start: 20130918, end: 20131016
  74. ALLOPURINOL [Concomitant]
     Indication: HYPERURICAEMIA
     Dosage: UNK
     Dates: start: 20120906
  75. DESLORATADINE [Concomitant]
     Indication: URTICARIA
     Dosage: UNK
     Dates: start: 20121101, end: 20130503
  76. TAMSULOSIN [Concomitant]
     Indication: BENIGN PROSTATIC HYPERPLASIA
     Dosage: UNK
     Dates: start: 20121130, end: 20130503
  77. NIFLEX [Concomitant]
     Indication: COLONOSCOPY
     Dosage: UNK
     Dates: start: 20121220, end: 20121220
  78. DIFLUCORTOLONE [Concomitant]
     Indication: ECZEMA
     Dosage: UNK
     Dates: start: 20120615
  79. MOSAPRIDE [Concomitant]
     Indication: CONSTIPATION
     Dosage: UNK
     Dates: start: 20130121, end: 20130218
  80. FUSIDIC ACID [Concomitant]
     Indication: SKIN ULCER
     Dosage: UNK
     Dates: start: 20130806, end: 20130820
  81. SENNOSIDE [Concomitant]
     Indication: CONSTIPATION
     Dosage: UNK
     Dates: start: 20130503, end: 20130520
  82. MEDICON A [Concomitant]
     Indication: INFLUENZA
     Dosage: UNK
     Dates: start: 20130408, end: 20130415
  83. TRIAMCINOLONE [Concomitant]
     Indication: RANULA
     Dosage: UNK
     Dates: start: 20130715, end: 20130729
  84. CEPHALEXIN [Concomitant]
     Indication: SKIN ULCER
     Dosage: UNK
     Dates: start: 20130806, end: 20130820
  85. BENZONATATE [Concomitant]
     Indication: COUGH
     Dosage: UNK
     Dates: start: 20130419, end: 20130520
  86. OSELTAMIVIR [Concomitant]
     Indication: INFLUENZA
     Dosage: UNK
     Dates: start: 20130404, end: 20130409
  87. LEVOCETIRIZINE [Concomitant]
     Indication: RANULA
     Dosage: UNK
     Dates: start: 20130718, end: 20130721
  88. RHIN [Concomitant]
     Indication: INFLUENZA
     Dosage: UNK
     Dates: start: 20130404, end: 20130415
  89. PREDNISOLONE [Concomitant]
     Indication: RANULA
     Dosage: UNK
     Dates: start: 20130718, end: 20130721
  90. AMOXICILLIN + CLAVULANIC ACID [Concomitant]
     Indication: INFLUENZA
     Dosage: UNK
     Dates: start: 20130404, end: 20130407
  91. AMN107 [Suspect]
     Dosage: UNK
     Dates: start: 20111216, end: 20111225
  92. AMN107 [Suspect]
     Dosage: UNK
     Dates: start: 20120109, end: 20120126
  93. AMN107 [Suspect]
     Dosage: UNK
     Dates: start: 20120127, end: 20120711
  94. AMN107 [Suspect]
     Dosage: UNK
     Dates: start: 20120712, end: 20120905
  95. AMN107 [Suspect]
     Dosage: UNK
     Dates: start: 20120906
  96. BROMHEXINE [Concomitant]
     Indication: PRODUCTIVE COUGH
     Dosage: UNK
     Dates: start: 20120316, end: 20120809
  97. BROMHEXINE [Concomitant]
     Indication: PHARYNGITIS
     Dosage: UNK
     Dates: start: 20120622, end: 20120725

REACTIONS (1)
  - Pharyngitis [Unknown]
